FAERS Safety Report 11214591 (Version 1)
Quarter: 2015Q2

REPORT INFORMATION
  Report Type: Spontaneous
  Country: US (occurrence: None)
  Receive Date: 20150608
  Receipt Date: 20150608
  Transmission Date: 20150821
  Serious: No
  Sender: FDA-Public Use
  Company Number: 2015TUS002525

PATIENT
  Sex: Female

DRUGS (2)
  1. UNKNOWN MEDS (ALL OTHER THERAPEUTIC PRODUCTS) [Concomitant]
  2. BRINTELLIX [Suspect]
     Active Substance: VORTIOXETINE HYDROBROMIDE
     Indication: PRODUCT USED FOR UNKNOWN INDICATION
     Dosage: SAMPLES
     Route: 048

REACTIONS (1)
  - Blepharospasm [None]
